FAERS Safety Report 6386561-4 (Version None)
Quarter: 2009Q4

REPORT INFORMATION
  Report Type: 
  Country: None (occurrence: None)
  Receive Date: 20091002
  Receipt Date: 20090522
  Transmission Date: 20100525
  Serious: No
  Sender: FDA-Public Use
  Company Number: US-ASTRAZENECA-2009UW07947

PATIENT
  Age: 57 Year
  Sex: Female
  Weight: 72 kg

DRUGS (8)
  1. ARIMIDEX [Suspect]
     Route: 048
     Dates: start: 20090324, end: 20090403
  2. LEVOTHYROXINE SODIUM [Concomitant]
  3. LITHIUM [Concomitant]
  4. ASPIRIN [Concomitant]
  5. KLONOPIN [Concomitant]
     Indication: SLEEP DISORDER
  6. KLONOPIN [Concomitant]
     Indication: TREMOR
  7. BEE POLLEN [Concomitant]
  8. POLICOSANOL [Concomitant]

REACTIONS (6)
  - ARTHRALGIA [None]
  - CHEST PAIN [None]
  - DEPRESSION [None]
  - FATIGUE [None]
  - LETHARGY [None]
  - LISTLESS [None]
